FAERS Safety Report 13250287 (Version 2)
Quarter: 2017Q2

REPORT INFORMATION
  Report Type: Spontaneous
  Country: US (occurrence: US)
  Receive Date: 20170218
  Receipt Date: 20170622
  Transmission Date: 20170830
  Serious: No
  Sender: FDA-Public Use
  Company Number: US-TEVA-727607ACC

PATIENT
  Age: 48 Year

DRUGS (9)
  1. METAMUCIL POW 58.12 % [Concomitant]
     Dates: start: 20160908
  2. VITAMIN C TAB 500 MG [Concomitant]
     Dates: start: 20160908
  3. VITAMIN E CAP 400 UNIT [Concomitant]
     Dates: start: 20160908
  4. COPAXONE [Suspect]
     Active Substance: GLATIRAMER ACETATE
     Indication: MULTIPLE SCLEROSIS
     Dosage: 17.1429 MILLIGRAM DAILY; PREFILLED SYRINGE; UNDER THE SKIN
     Dates: start: 2011
  5. FISH OIL CAP 1000 MG [Concomitant]
     Dates: start: 20160908
  6. PROBIOTIC CAP [Concomitant]
     Dates: start: 20160908
  7. VITAMIN D3 TAB 1000 UNIT [Concomitant]
     Dates: start: 20160908
  8. VITAMIN B12 TAB 100 MCG [Concomitant]
     Dates: start: 20160908
  9. VITAMIN D CAP 50000 UNIT [Concomitant]
     Dosage: 50000 UNIT

REACTIONS (8)
  - Flushing [Unknown]
  - Chills [Recovered/Resolved]
  - Dyspnoea [Unknown]
  - Hypoaesthesia [Unknown]
  - Pruritus [Unknown]
  - Pain in extremity [Unknown]
  - Immediate post-injection reaction [Recovered/Resolved]
  - Back pain [Unknown]

NARRATIVE: CASE EVENT DATE: 201612
